FAERS Safety Report 4986431-X (Version None)
Quarter: 2006Q2

REPORT INFORMATION
  Report Type: 
  Country: None (occurrence: None)
  Receive Date: 20060428
  Receipt Date: 20060418
  Transmission Date: 20061013
  Serious: Yes (Hospitalization)
  Sender: FDA-Public Use
  Company Number: CA-BRISTOL-MYERS SQUIBB COMPANY-13350962

PATIENT
  Age: 79 Year
  Sex: Female
  Weight: 54 kg

DRUGS (20)
  1. CARBOPLATIN [Suspect]
     Indication: OVARIAN CANCER
     Route: 042
     Dates: start: 20040621, end: 20040621
  2. CAELYX [Suspect]
     Indication: OVARIAN CANCER
     Route: 042
     Dates: start: 20040621, end: 20040723
  3. MAXERAN [Concomitant]
     Indication: NAUSEA
     Route: 048
     Dates: start: 20040623
  4. IMODIUM [Concomitant]
     Indication: DIARRHOEA
     Route: 048
     Dates: start: 20040101
  5. SYNTHROID [Concomitant]
     Indication: HYPOTHYROIDISM
     Route: 048
  6. SECTRAL [Concomitant]
     Indication: HYPERTENSION
     Route: 048
     Dates: start: 19940101
  7. NORVASC [Concomitant]
     Indication: HYPERTENSION
     Route: 048
     Dates: start: 19960101
  8. TRIAZID [Concomitant]
     Indication: DIURETIC THERAPY
     Route: 048
     Dates: start: 19990101
  9. ZOPICLONE [Concomitant]
     Indication: INSOMNIA
     Route: 048
     Dates: start: 20040501
  10. ONDANSETRON [Concomitant]
     Indication: PROPHYLAXIS OF NAUSEA AND VOMITING
     Route: 048
     Dates: start: 20040621, end: 20040623
  11. DEXAMETHASONE [Concomitant]
     Indication: PROPHYLAXIS OF NAUSEA AND VOMITING
     Route: 048
     Dates: start: 20040622, end: 20040624
  12. XALATAN [Concomitant]
     Indication: GLAUCOMA
     Route: 031
  13. PYRIDOXINE HCL [Concomitant]
     Dates: start: 20040621
  14. EXTRA STRENGTH TYLENOL [Concomitant]
     Indication: NEUROPATHY PERIPHERAL
     Route: 048
     Dates: start: 20040301
  15. NITRO-DUR [Concomitant]
     Route: 062
  16. VITAMIN B6 [Concomitant]
     Route: 048
  17. FERROUS SULFATE TAB [Concomitant]
     Route: 048
  18. DOCUSATE SODIUM [Concomitant]
     Route: 048
  19. METOPROLOL [Concomitant]
     Route: 048
  20. ASPIRIN [Concomitant]
     Route: 048

REACTIONS (2)
  - ANAEMIA [None]
  - ANGINA UNSTABLE [None]
